FAERS Safety Report 9934785 (Version 1)
Quarter: 2014Q1

REPORT INFORMATION
  Report Type: Spontaneous
  Country: CO (occurrence: CO)
  Receive Date: 20140228
  Receipt Date: 20140228
  Transmission Date: 20141002
  Serious: Yes (Other)
  Sender: FDA-Public Use
  Company Number: CO-VIIV HEALTHCARE LIMITED-A1062769A

PATIENT
  Age: 23 Year
  Sex: Male
  Weight: 60 kg

DRUGS (2)
  1. KIVEXA [Suspect]
     Indication: HIV INFECTION
     Dosage: 1TAB PER DAY
     Route: 048
     Dates: start: 20140209, end: 20140219
  2. EFAVIRENZ [Concomitant]

REACTIONS (10)
  - Rash generalised [Recovered/Resolved]
  - Myalgia [Unknown]
  - Pyrexia [Unknown]
  - Headache [Unknown]
  - Chills [Unknown]
  - Depressed mood [Unknown]
  - Lip swelling [Unknown]
  - Eyelid oedema [Unknown]
  - Ear swelling [Unknown]
  - Eye irritation [Unknown]
